FAERS Safety Report 8522701 (Version 2)
Quarter: 2013Q2

REPORT INFORMATION
  Report Type: Spontaneous
  Country: US (occurrence: US)
  Receive Date: 20120419
  Receipt Date: 20130415
  Transmission Date: 20140414
  Serious: Yes (Hospitalization, Other)
  Sender: FDA-Public Use
  Company Number: US-ELI_LILLY_AND_COMPANY-US201111007210

PATIENT
  Sex: Female

DRUGS (5)
  1. FORTEO [Suspect]
     Indication: OSTEOPOROSIS
     Dosage: 20 UG, QD
     Dates: start: 201110
  2. FORTEO [Suspect]
     Dosage: 20 UG, QD
  3. FORTEO [Suspect]
     Dosage: 20 UG, QD
  4. FORTEO [Suspect]
  5. LUNESTA [Concomitant]

REACTIONS (11)
  - Amnesia [Recovered/Resolved]
  - Incoherent [Recovered/Resolved]
  - Weight increased [Unknown]
  - Oliguria [Unknown]
  - Waist circumference increased [Unknown]
  - Injection site bruising [Unknown]
  - Nausea [Unknown]
  - Drug dose omission [Unknown]
  - Incorrect storage of drug [Unknown]
  - Incorrect dose administered [Unknown]
  - Incorrect dose administered [Unknown]
